FAERS Safety Report 10309251 (Version 2)
Quarter: 2014Q3

REPORT INFORMATION
  Report Type: Report from Study
  Country: US (occurrence: US)
  Receive Date: 20140716
  Receipt Date: 20140716
  Transmission Date: 20150326
  Serious: Yes (Other)
  Sender: FDA-Public Use
  Company Number: US-B.I. PHARMACEUTICALS,INC./RIDGEFIELD-2014-BI-30091BI

PATIENT
  Age: 76 Year
  Sex: Male

DRUGS (16)
  1. GILOTRIF [Suspect]
     Active Substance: AFATINIB
     Indication: NON-SMALL CELL LUNG CANCER
     Dosage: 30 MG
     Route: 048
     Dates: start: 20140614
  2. ONDASETRON [Concomitant]
     Indication: NAUSEA
     Dosage: 24 MG
     Route: 065
  3. LOVENOX [Concomitant]
     Active Substance: ENOXAPARIN SODIUM
     Indication: THROMBOSIS
     Dosage: 180 MG
     Route: 065
  4. CLINDAMYCIN [Concomitant]
     Active Substance: CLINDAMYCIN\CLINDAMYCIN PHOSPHATE
     Indication: PROPHYLAXIS
     Route: 065
  5. STEROIDS [Concomitant]
     Active Substance: UNSPECIFIED INGREDIENT
     Route: 065
  6. EUCERIN [Concomitant]
     Active Substance: ENSULIZOLE\EUCERIN\OCTINOXATE\OCTISALATE\TITANIUM DIOXIDE\ZINC OXIDE
     Route: 065
  7. XALATAN [Concomitant]
     Active Substance: LATANOPROST
     Indication: GLAUCOMA
     Dosage: ROUTE: EYE, STRENGTH 0.005%
     Route: 050
  8. RADIATION THERAPY [Concomitant]
     Active Substance: RADIATION THERAPY
     Route: 065
     Dates: start: 20140617
  9. DRONABINOL. [Concomitant]
     Active Substance: DRONABINOL
     Dosage: 2.5 MG
     Route: 065
  10. SALINE WITH ADDED POTASSIUM [Concomitant]
     Dosage: 642.8571 ML
     Route: 042
  11. RADIATION THERAPY [Concomitant]
     Active Substance: RADIATION THERAPY
     Route: 065
  12. THYROID DRUG [Concomitant]
     Dosage: 175 MCG
     Route: 065
  13. DOXYCYCLINE. [Concomitant]
     Active Substance: DOXYCYCLINE
     Indication: PROPHYLAXIS
     Dosage: 200 MG
     Route: 065
  14. EQUATE PLUS [Concomitant]
     Dosage: STRENGTH: 350 CALORIES
     Route: 065
  15. PEPCID [Concomitant]
     Active Substance: FAMOTIDINE
     Dosage: 40 MG
     Route: 065
  16. ANTI NAUSEA MEDICATION [Concomitant]
     Indication: NAUSEA
     Route: 065

REACTIONS (4)
  - Weight decreased [Unknown]
  - Lung neoplasm [Unknown]
  - Diarrhoea [Not Recovered/Not Resolved]
  - Haemoptysis [Not Recovered/Not Resolved]

NARRATIVE: CASE EVENT DATE: 20140620
